FAERS Safety Report 9936853 (Version 1)
Quarter: 2014Q1

REPORT INFORMATION
  Report Type: Spontaneous
  Country: US (occurrence: None)
  Receive Date: 20140114
  Receipt Date: 20140114
  Transmission Date: 20141002
  Serious: Yes (Other)
  Sender: FDA-Public Use
  Company Number: E2020-12276-SPO-US

PATIENT
  Age: 72 Year
  Sex: Female
  Weight: 104.33 kg

DRUGS (1)
  1. ARICEPT (DONEPEZIL HYDROCHLORIDE) [Suspect]
     Indication: DEMENTIA ALZHEIMER^S TYPE
     Route: 048
     Dates: start: 20120926, end: 201210

REACTIONS (1)
  - Diarrhoea [None]
